FAERS Safety Report 14604657 (Version 2)
Quarter: 2018Q3

REPORT INFORMATION
  Report Type: Spontaneous
  Country: JP (occurrence: JP)
  Receive Date: 20180306
  Receipt Date: 20180726
  Transmission Date: 20181010
  Serious: Yes (Death, Hospitalization, Other)
  Sender: FDA-Public Use
  Company Number: PHJP2018JP005138

PATIENT
  Sex: Female

DRUGS (2)
  1. TEGRETOL [Suspect]
     Active Substance: CARBAMAZEPINE
     Indication: TEMPORAL LOBE EPILEPSY
     Dosage: 250 MG, TID
     Route: 048
     Dates: start: 20140901
  2. PHENOBARBITAL. [Concomitant]
     Active Substance: PHENOBARBITAL
     Indication: TEMPORAL LOBE EPILEPSY
     Dosage: 60 MG, QD
     Route: 065

REACTIONS (9)
  - Acute respiratory distress syndrome [Unknown]
  - Oxygen saturation decreased [Unknown]
  - Bradycardia [Fatal]
  - Cardiac arrest [Fatal]
  - Blood pressure decreased [Fatal]
  - Nausea [Unknown]
  - Pyelonephritis [Unknown]
  - Sepsis [Unknown]
  - Epilepsy [Unknown]
